FAERS Safety Report 7412230-5 (Version None)
Quarter: 2011Q2

REPORT INFORMATION
  Report Type: 
  Country: None (occurrence: None)
  Receive Date: 20110413
  Receipt Date: 20110401
  Transmission Date: 20111010
  Serious: Yes (Hospitalization)
  Sender: FDA-Public Use
  Company Number: GB-JNJFOC-20110203623

PATIENT
  Age: 23 Year
  Sex: Male
  Weight: 56.4 kg

DRUGS (3)
  1. RALTEGRAVIR [Suspect]
     Indication: HIV INFECTION
     Route: 048
  2. DARUNAVIR [Suspect]
     Indication: HIV INFECTION
     Route: 048
  3. RITONAVIR [Suspect]
     Indication: HIV INFECTION
     Route: 048

REACTIONS (1)
  - ERYTHEMA MULTIFORME [None]
